FAERS Safety Report 24063703 (Version 1)
Quarter: 2024Q3

REPORT INFORMATION
  Report Type: Report from Study
  Country: CA (occurrence: CA)
  Receive Date: 20240709
  Receipt Date: 20240709
  Transmission Date: 20241017
  Serious: Yes (Hospitalization, Other)
  Sender: ABBVIE
  Company Number: CA-ABBVIE-5795103

PATIENT
  Sex: Male

DRUGS (2)
  1. HUMIRA [Suspect]
     Active Substance: ADALIMUMAB
     Indication: Ankylosing spondylitis
     Route: 058
     Dates: start: 20080913, end: 20231207
  2. STELARA [Suspect]
     Active Substance: USTEKINUMAB
     Indication: Product used for unknown indication
     Route: 065

REACTIONS (4)
  - Crohn^s disease [Recovering/Resolving]
  - Ankylosing spondylitis [Unknown]
  - Fear of disease [Unknown]
  - Sepsis [Unknown]

NARRATIVE: CASE EVENT DATE: 20240101
